FAERS Safety Report 9192567 (Version 1)
Quarter: 2013Q1

REPORT INFORMATION
  Report Type: Spontaneous
  Country: US (occurrence: US)
  Receive Date: 20130327
  Receipt Date: 20130327
  Transmission Date: 20140127
  Serious: No
  Sender: FDA-Public Use
  Company Number: US-PFIZER INC-2013098515

PATIENT
  Age: 54 Year
  Sex: Male
  Weight: 81.63 kg

DRUGS (2)
  1. EFFEXOR XR [Suspect]
     Indication: DEPRESSION
     Dosage: 75 MG, UNK
  2. STRATTERA [Concomitant]
     Indication: ATTENTION DEFICIT/HYPERACTIVITY DISORDER
     Dosage: UNK

REACTIONS (1)
  - Withdrawal syndrome [Unknown]
